FAERS Safety Report 24055961 (Version 1)
Quarter: 2024Q3

REPORT INFORMATION
  Report Type: Report from Study
  Country: KR (occurrence: None)
  Receive Date: 20240705
  Receipt Date: 20240705
  Transmission Date: 20241017
  Serious: Yes (Hospitalization)
  Sender: ASTRAZENECA
  Company Number: 2024A149698

PATIENT
  Age: 796 Month
  Sex: Female

DRUGS (7)
  1. TAGRISSO [Suspect]
     Active Substance: OSIMERTINIB
     Indication: Non-small cell lung cancer
     Route: 048
     Dates: start: 20231006, end: 20240506
  2. DULOXTA C AP 30MG [Concomitant]
     Indication: Thrombosis
     Route: 048
     Dates: start: 20240423
  3. LYRICA CAP 75MG [Concomitant]
     Indication: Thrombosis
     Route: 048
     Dates: start: 20240429
  4. PENIRAMIN INJ [Concomitant]
     Indication: Drug hypersensitivity
     Route: 042
     Dates: start: 20231001
  5. PARAMAC ET TAB [Concomitant]
     Indication: Thrombosis
     Route: 048
     Dates: start: 20240429
  6. UBAC SIN INJ 1.5g [Concomitant]
     Indication: Thrombosis
     Route: 042
     Dates: start: 20240430
  7. XARELTO [Concomitant]
     Active Substance: RIVAROXABAN
     Indication: Thrombosis
     Route: 048
     Dates: start: 20240504

REACTIONS (1)
  - Thrombosis [Recovering/Resolving]

NARRATIVE: CASE EVENT DATE: 20240423
